FAERS Safety Report 6434168-2 (Version None)
Quarter: 2009Q4

REPORT INFORMATION
  Report Type: 
  Country: None (occurrence: None)
  Receive Date: 20091110
  Receipt Date: 20091103
  Transmission Date: 20100525
  Serious: Yes (Hospitalization)
  Sender: FDA-Public Use
  Company Number: CA-AMGEN-QUU372585

PATIENT
  Sex: Male
  Weight: 46.6 kg

DRUGS (4)
  1. ARANESP [Suspect]
     Indication: DRUG USE FOR UNKNOWN INDICATION
     Route: 058
  2. TACROLIMUS [Concomitant]
     Dates: start: 20091001
  3. VALGANCICLOVIR HCL [Concomitant]
  4. SEPTRA [Concomitant]

REACTIONS (1)
  - ANAEMIA [None]
